FAERS Safety Report 7582557-5 (Version None)
Quarter: 2011Q2

REPORT INFORMATION
  Report Type: 
  Country: None (occurrence: None)
  Receive Date: 20110630
  Receipt Date: 20110627
  Transmission Date: 20111010
  Serious: No
  Sender: FDA-Public Use
  Company Number: US-PFIZER INC-2011142834

PATIENT
  Age: 8 Year
  Sex: Female

DRUGS (2)
  1. SERTRALINE HYDROCHLORIDE [Suspect]
     Dosage: UNK
     Route: 048
  2. FLUOXETINE [Suspect]
     Dosage: UNK

REACTIONS (3)
  - HOSTILITY [None]
  - DYSGEUSIA [None]
  - AGITATION [None]
